FAERS Safety Report 5810450-4 (Version None)
Quarter: 2008Q3

REPORT INFORMATION
  Report Type: 
  Country: None (occurrence: None)
  Receive Date: 20080709
  Receipt Date: 20080630
  Transmission Date: 20090109
  Serious: Yes (Disabling)
  Sender: FDA-Public Use
  Company Number: 100#08#2008-03376

PATIENT
  Age: 25 Year
  Sex: Female

DRUGS (9)
  1. METHOTREXATE [Suspect]
     Indication: ACUTE LYMPHOCYTIC LEUKAEMIA
     Dosage: 12 MG INTRATHECAL
     Route: 037
  2. CYTARABINE [Suspect]
     Indication: ACUTE LYMPHOCYTIC LEUKAEMIA
     Dosage: 40 MG INTRATHECAL
     Route: 037
  3. HYDROCORTISONE [Concomitant]
  4. VINCRISTINE [Concomitant]
  5. PREDNISOLONE [Concomitant]
  6. DAUNORUBICIN HCL [Concomitant]
  7. L-ASPARAGINASE (L-ASPARAGINASE) [Concomitant]
  8. MERCAPTOPURINE [Concomitant]
  9. METHOTREXATE [Concomitant]

REACTIONS (1)
  - PARAPLEGIA [None]
